APPROVED DRUG PRODUCT: ORTHO-EST
Active Ingredient: ESTROPIPATE
Strength: 1.5MG
Dosage Form/Route: TABLET;ORAL
Application: A089582 | Product #001
Applicant: SUN PHARMACEUTICAL INDUSTRIES INC
Approved: Jul 17, 1991 | RLD: No | RS: No | Type: DISCN